FAERS Safety Report 15656195 (Version 2)
Quarter: 2018Q4

REPORT INFORMATION
  Report Type: Spontaneous
  Country: US (occurrence: US)
  Receive Date: 20181126
  Receipt Date: 20181210
  Transmission Date: 20190205
  Serious: No
  Sender: FDA-Public Use
  Company Number: US-VERTEX PHARMACEUTICALS-2018-008522

PATIENT
  Sex: Male

DRUGS (1)
  1. ORKAMBI [Suspect]
     Active Substance: IVACAFTOR\LUMACAFTOR
     Indication: CYSTIC FIBROSIS
     Dosage: 200/250 MG, BID
     Route: 048
     Dates: start: 20180928

REACTIONS (6)
  - Abdominal pain [Not Recovered/Not Resolved]
  - Nightmare [Unknown]
  - Bruxism [Unknown]
  - Cough [Unknown]
  - Inappropriate affect [Unknown]
  - Steatorrhoea [Not Recovered/Not Resolved]

NARRATIVE: CASE EVENT DATE: 2018
